FAERS Safety Report 5324597-2 (Version None)
Quarter: 2007Q2

REPORT INFORMATION
  Report Type: 
  Country: None (occurrence: None)
  Receive Date: 20070514
  Receipt Date: 20070504
  Transmission Date: 20071010
  Serious: Yes (Other)
  Sender: FDA-Public Use
  Company Number: FR-PFIZER INC-2007036996

PATIENT
  Age: 66 Year
  Sex: Male

DRUGS (3)
  1. TAHOR [Suspect]
     Indication: HYPERCHOLESTEROLAEMIA
     Dates: start: 20070101, end: 20070101
  2. AMLOR [Suspect]
     Indication: HYPERTENSION
     Dates: start: 20070115, end: 20070221
  3. KARDEGIC [Concomitant]

REACTIONS (2)
  - PRURITUS [None]
  - TOXIC SKIN ERUPTION [None]
